FAERS Safety Report 9801883 (Version 1)
Quarter: 2014Q1

REPORT INFORMATION
  Report Type: Spontaneous
  Country: US (occurrence: US)
  Receive Date: 20140107
  Receipt Date: 20140107
  Transmission Date: 20141002
  Serious: No
  Sender: FDA-Public Use
  Company Number: US-ALLERGAN-1216254US

PATIENT
  Age: 10 Year
  Sex: Female

DRUGS (3)
  1. ACZONE [Suspect]
     Indication: ACNE
     Dosage: UNK
     Route: 061
     Dates: start: 201211
  2. ACZONE [Suspect]
     Dosage: UNK, QAM
     Route: 061
     Dates: start: 201209
  3. NEO-EXFOLIATING [Concomitant]
     Indication: THERAPEUTIC SKIN CARE TOPICAL
     Dosage: UNK UNK, QD
     Route: 061
     Dates: start: 201209

REACTIONS (6)
  - Acne [Not Recovered/Not Resolved]
  - Erythema [Not Recovered/Not Resolved]
  - Skin irritation [Not Recovered/Not Resolved]
  - Dry skin [Not Recovered/Not Resolved]
  - Skin irritation [Not Recovered/Not Resolved]
  - Off label use [Unknown]
